FAERS Safety Report 6700914-3 (Version None)
Quarter: 2010Q2

REPORT INFORMATION
  Report Type: 
  Country: None (occurrence: None)
  Receive Date: 20100428
  Receipt Date: 20100427
  Transmission Date: 20101027
  Serious: Yes (Hospitalization, Other)
  Sender: FDA-Public Use
  Company Number: DE-ROXANE LABORATORIES, INC.-2010-RO-00471RO

PATIENT
  Age: 64 Year
  Sex: Male

DRUGS (4)
  1. CLARITHROMYCIN [Suspect]
     Indication: HELICOBACTER INFECTION
     Dosage: 1000 MG
  2. AMOXICILLIN [Suspect]
     Indication: HELICOBACTER INFECTION
     Dosage: 2 G
  3. PANTOPRAZOLE [Suspect]
     Indication: HELICOBACTER INFECTION
     Dosage: 80 MG
  4. SULTAMICILLIN [Concomitant]
     Indication: CHOLECYSTITIS ACUTE
     Dosage: 9 G

REACTIONS (6)
  - DECREASED APPETITE [None]
  - DRY MOUTH [None]
  - FLANK PAIN [None]
  - HEPATITIS CHOLESTATIC [None]
  - THROAT IRRITATION [None]
  - WEIGHT DECREASED [None]
